FAERS Safety Report 8037348 (Version 21)
Quarter: 2014Q2

REPORT INFORMATION
  Report Type: Spontaneous
  Country: US (occurrence: US)
  Receive Date: 20110715
  Receipt Date: 20140627
  Transmission Date: 20141212
  Serious: Yes (Hospitalization)
  Sender: FDA-Public Use
  Company Number: US-GLAXOSMITHKLINE-A0936863A

PATIENT
  Age: 36 Year
  Sex: Female
  Weight: 89.5 kg

DRUGS (24)
  1. FLOLAN [Suspect]
     Indication: PULMONARY HYPERTENSION
     Dosage: 30NGKM CONTINUOUS
     Route: 065
     Dates: start: 20070508
  2. LETAIRIS [Suspect]
     Indication: PULMONARY ARTERIAL HYPERTENSION
     Dosage: 10MG PER DAY
     Route: 048
     Dates: start: 20090318
  3. REMODULIN [Suspect]
     Indication: PRODUCT USED FOR UNKNOWN INDICATION
     Dosage: 20NGKM CONTINUOUS
     Route: 058
  4. ADVAIR [Concomitant]
  5. COMBIVENT [Concomitant]
  6. DEPO-PROVERA [Concomitant]
  7. FERROUS GLUCONATE [Concomitant]
  8. GABAPENTIN [Concomitant]
  9. ISENTRESS [Concomitant]
  10. LOPERAMIDE [Concomitant]
  11. OXYGEN [Concomitant]
  12. SINGULAIR [Concomitant]
  13. SODIUM CHLORIDE [Concomitant]
  14. SPIRONOLACTONE [Concomitant]
  15. TRUVADA [Concomitant]
  16. TYLENOL + CODEINE [Concomitant]
  17. VALTREX [Concomitant]
  18. METFORMIN [Concomitant]
  19. COUMADIN [Concomitant]
  20. REMODULIN [Concomitant]
  21. LETAIRIS [Concomitant]
  22. NEURONTIN [Concomitant]
  23. CLARITIN [Concomitant]
  24. PEPCID [Concomitant]

REACTIONS (33)
  - Infusion site infection [Unknown]
  - Central venous catheterisation [Unknown]
  - Device related infection [Unknown]
  - Tendonitis [Unknown]
  - Pain in extremity [Unknown]
  - Local swelling [Unknown]
  - Diarrhoea [Unknown]
  - Infusion site pain [Unknown]
  - Device issue [Unknown]
  - Nasopharyngitis [Unknown]
  - Cough [Unknown]
  - Nausea [Not Recovered/Not Resolved]
  - Vomiting [Not Recovered/Not Resolved]
  - Catheter site swelling [Unknown]
  - Rash [Unknown]
  - Chest pain [Not Recovered/Not Resolved]
  - Pyrexia [Not Recovered/Not Resolved]
  - Neck pain [Not Recovered/Not Resolved]
  - Thrombosis [Unknown]
  - Application site vesicles [Unknown]
  - Musculoskeletal pain [Not Recovered/Not Resolved]
  - Investigation [Unknown]
  - Dyspnoea [Not Recovered/Not Resolved]
  - Catheter site pain [Unknown]
  - Pain [Unknown]
  - Tenderness [Unknown]
  - Infection [Unknown]
  - Septic embolus [Unknown]
  - Thrombosis in device [Unknown]
  - Catheter removal [Unknown]
  - Wound [Unknown]
  - Catheterisation cardiac [Unknown]
  - Injection site pain [Unknown]
